FAERS Safety Report 8112966-7 (Version None)
Quarter: 2012Q1

REPORT INFORMATION
  Report Type: 
  Country: None (occurrence: None)
  Receive Date: 20120131
  Receipt Date: 20120120
  Transmission Date: 20120608
  Serious: Yes (Other)
  Sender: FDA-Public Use
  Company Number: AUR-APL-2012-00682

PATIENT
  Sex: Female

DRUGS (2)
  1. EFFEXOR XR [Suspect]
     Indication: BIPOLAR DISORDER
     Dosage: 75 MG (37.5 MG, 2 IN 1 D), ORAL
     Route: 048
  2. VENLAFAXINE [Suspect]
     Indication: BIPOLAR DISORDER

REACTIONS (6)
  - RENAL FAILURE [None]
  - SKIN DISCOLOURATION [None]
  - MENTAL DISORDER [None]
  - GENERAL PHYSICAL CONDITION ABNORMAL [None]
  - PSORIASIS [None]
  - HEPATIC FAILURE [None]
